FAERS Safety Report 8132062-2 (Version None)
Quarter: 2012Q1

REPORT INFORMATION
  Report Type: 
  Country: None (occurrence: None)
  Receive Date: 20120103
  Receipt Date: 20110921
  Transmission Date: 20120608
  Serious: No
  Sender: FDA-Public Use
  Company Number: AE-2011-001717

PATIENT
  Age: 61 Year
  Sex: Male
  Weight: 77.1115 kg

DRUGS (10)
  1. INCIVEK [Suspect]
     Dosage: 2250 MG (750 MG,3 IN 1 D),ORAL
     Route: 048
     Dates: start: 20110913
  2. IBUPROFEN [Concomitant]
  3. ASPIRIN [Concomitant]
  4. VITAMIN B COMPLEX (B-KOMPLEX ^LECIVA^) [Concomitant]
  5. PEGASYS [Concomitant]
  6. VITAMIN D [Concomitant]
  7. CENTRUM 50+ (CENTRUM) [Concomitant]
  8. DICYCLOMINE (DICYCLOVERMINE HYDROCHLORIDE) [Concomitant]
  9. RIBAVIRIN [Concomitant]
  10. ZOLPIDEM [Concomitant]

REACTIONS (4)
  - PURULENT DISCHARGE [None]
  - FATIGUE [None]
  - PRURITUS [None]
  - DYSPNOEA [None]
